FAERS Safety Report 18417227 (Version 13)
Quarter: 2025Q1

REPORT INFORMATION
  Report Type: Spontaneous
  Country: US (occurrence: US)
  Receive Date: 20201022
  Receipt Date: 20250311
  Transmission Date: 20250409
  Serious: Yes (Life-Threatening, Hospitalization, Disabling, Congenital Anomaly, Other)
  Sender: BAUSCH AND LOMB
  Company Number: US-BAUSCH-BL-2020-030833

PATIENT
  Age: 39 Year
  Sex: Female
  Weight: 77.18 kg

DRUGS (6)
  1. ELIDEL [Suspect]
     Active Substance: PIMECROLIMUS
     Indication: Dry skin prophylaxis
     Route: 065
     Dates: start: 2001
  2. ELIDEL [Suspect]
     Active Substance: PIMECROLIMUS
     Indication: Eczema
  3. ALDARA [Suspect]
     Active Substance: IMIQUIMOD
     Indication: Product used for unknown indication
     Route: 065
     Dates: start: 2003
  4. DESONIDE [Concomitant]
     Active Substance: DESONIDE
     Indication: Product used for unknown indication
     Dosage: 2 MONTHS PRIOR
  5. MEDROL [Concomitant]
     Active Substance: METHYLPREDNISOLONE
     Indication: Product used for unknown indication
  6. CLOBETASOL [Concomitant]
     Active Substance: CLOBETASOL
     Indication: Product used for unknown indication
     Dates: start: 2015, end: 2020

REACTIONS (62)
  - Hospitalisation [Unknown]
  - Crohn^s disease [Not Recovered/Not Resolved]
  - White blood cell count increased [Not Recovered/Not Resolved]
  - Skin atrophy [Not Recovered/Not Resolved]
  - Skin weeping [Not Recovered/Not Resolved]
  - Respiratory disorder [Not Recovered/Not Resolved]
  - Tooth loss [Not Recovered/Not Resolved]
  - Muscle disorder [Not Recovered/Not Resolved]
  - Metastasis [Not Recovered/Not Resolved]
  - Blood disorder [Unknown]
  - Rheumatoid arthritis [Not Recovered/Not Resolved]
  - Rheumatoid nodule [Not Recovered/Not Resolved]
  - Application site haemorrhage [Not Recovered/Not Resolved]
  - Bone disorder [Not Recovered/Not Resolved]
  - Application site fissure [Not Recovered/Not Resolved]
  - Musculoskeletal stiffness [Not Recovered/Not Resolved]
  - Decreased immune responsiveness [Not Recovered/Not Resolved]
  - Adverse event [Not Recovered/Not Resolved]
  - Illness [Not Recovered/Not Resolved]
  - Application site swelling [Not Recovered/Not Resolved]
  - Application site hypoaesthesia [Not Recovered/Not Resolved]
  - Arthropathy [Unknown]
  - Full blood count abnormal [Unknown]
  - Dyspnoea [Not Recovered/Not Resolved]
  - Application site oedema [Not Recovered/Not Resolved]
  - Agitation [Unknown]
  - Anaemia macrocytic [Unknown]
  - Sciatica [Unknown]
  - Paranoia [Unknown]
  - Anger [Unknown]
  - Frustration tolerance decreased [Unknown]
  - Disturbance in attention [Unknown]
  - Amnesia [Unknown]
  - Inflammation [Unknown]
  - Stress cardiomyopathy [Unknown]
  - Emotional disorder [Unknown]
  - Tooth avulsion [Unknown]
  - Paraesthesia [Unknown]
  - Musculoskeletal pain [Unknown]
  - Allodynia [Unknown]
  - Brain fog [Unknown]
  - Vitamin D deficiency [Unknown]
  - Adrenal mass [Unknown]
  - Loss of personal independence in daily activities [Unknown]
  - Palpitations [Unknown]
  - Fatigue [Not Recovered/Not Resolved]
  - Depression [Not Recovered/Not Resolved]
  - Alopecia [Unknown]
  - Dizziness [Unknown]
  - Anxiety [Unknown]
  - Application site exfoliation [Not Recovered/Not Resolved]
  - Myalgia [Not Recovered/Not Resolved]
  - Insomnia [Not Recovered/Not Resolved]
  - Headache [Unknown]
  - Nausea [Unknown]
  - Lymphadenopathy [Unknown]
  - Application site dryness [Not Recovered/Not Resolved]
  - Asthma [Unknown]
  - Application site discolouration [Not Recovered/Not Resolved]
  - Application site pain [Not Recovered/Not Resolved]
  - Application site pruritus [Unknown]
  - Application site irritation [Unknown]

NARRATIVE: CASE EVENT DATE: 20010101
